FAERS Safety Report 19691328 (Version 1)
Quarter: 2021Q3

REPORT INFORMATION
  Report Type: Other
  Country: IN (occurrence: IN)
  Receive Date: 20210812
  Receipt Date: 20210812
  Transmission Date: 20211014
  Serious: Yes (Other)
  Sender: FDA-Public Use
  Company Number: IN-ROCHE-2887891

PATIENT

DRUGS (1)
  1. TENECTEPLASE [Suspect]
     Active Substance: TENECTEPLASE
     Indication: ISCHAEMIC STROKE
     Dosage: 0.2 MG/KG (MAXIMUM OF 20 MG) AS A SINGLE BOLUS INTRAVENOUSLY
     Route: 042

REACTIONS (2)
  - Cerebral haemorrhage [Unknown]
  - NIH stroke scale abnormal [Unknown]
